FAERS Safety Report 6679586-2 (Version None)
Quarter: 2010Q2

REPORT INFORMATION
  Report Type: 
  Country: None (occurrence: None)
  Receive Date: 20100409
  Receipt Date: 20100401
  Transmission Date: 20101027
  Serious: Yes (Hospitalization, Other)
  Sender: FDA-Public Use
  Company Number: A-NJ2010-34829

PATIENT
  Age: 88 Year
  Sex: Female

DRUGS (15)
  1. TRACLEER [Suspect]
     Indication: PULMONARY ARTERIAL HYPERTENSION
     Dosage: 125 MG, BID, ORAL 62.5 MG, BID
     Route: 048
     Dates: start: 20050517, end: 20050711
  2. TRACLEER [Suspect]
     Indication: PULMONARY ARTERIAL HYPERTENSION
     Dosage: 125 MG, BID, ORAL 62.5 MG, BID
     Route: 048
     Dates: start: 20050712, end: 20100226
  3. COUMADIN [Concomitant]
  4. EXTRA STRENGTH TYLENOL [Concomitant]
  5. ALBUTEROL [Concomitant]
  6. AZOPT [Concomitant]
  7. FENTANYL-100 [Concomitant]
  8. FERROUS SULFATE TAB [Concomitant]
  9. LASIX [Concomitant]
  10. MUCINEX [Concomitant]
  11. HYDROCHLOROTHIAZIDE [Concomitant]
  12. MILK OF MAGNESIA TAB [Concomitant]
  13. MULTIVITAMIN [Concomitant]
  14. OMEPRAZOLE [Concomitant]
  15. MIRALAX [Concomitant]

REACTIONS (8)
  - ALANINE AMINOTRANSFERASE INCREASED [None]
  - ASPARTATE AMINOTRANSFERASE INCREASED [None]
  - EAR PAIN [None]
  - HAEMOGLOBIN DECREASED [None]
  - HYPOXIA [None]
  - OFF LABEL USE [None]
  - OROPHARYNGEAL PAIN [None]
  - VIRAL UPPER RESPIRATORY TRACT INFECTION [None]
